FAERS Safety Report 23683182 (Version 1)
Quarter: 2024Q1

REPORT INFORMATION
  Report Type: Spontaneous
  Country: JP (occurrence: JP)
  Receive Date: 20240328
  Receipt Date: 20240328
  Transmission Date: 20240410
  Serious: Yes (Hospitalization, Other)
  Sender: FDA-Public Use
  Company Number: None

PATIENT
  Sex: Female

DRUGS (2)
  1. PREDNISOLONE [Suspect]
     Active Substance: PREDNISOLONE
     Indication: Autoimmune demyelinating disease
     Dosage: UNK
     Route: 065
  2. AZATHIOPRINE [Suspect]
     Active Substance: AZATHIOPRINE
     Indication: Autoimmune demyelinating disease
     Dosage: UNK
     Route: 065

REACTIONS (5)
  - Hepatic encephalopathy [Unknown]
  - Acute hepatic failure [Unknown]
  - Epstein-Barr virus infection reactivation [Unknown]
  - Erythema [Recovered/Resolved]
  - Off label use [Unknown]
